FAERS Safety Report 23645539 (Version 1)
Quarter: 2024Q1

REPORT INFORMATION
  Report Type: Spontaneous
  Country: CA (occurrence: CA)
  Receive Date: 20240319
  Receipt Date: 20240319
  Transmission Date: 20240409
  Serious: Yes (Hospitalization)
  Sender: FDA-Public Use
  Company Number: CA-STERISCIENCE B.V.-2024-ST-000282

PATIENT
  Age: 75 Year
  Sex: Female

DRUGS (1)
  1. BUPIVACAINE [Suspect]
     Active Substance: BUPIVACAINE
     Indication: Nerve block
     Dosage: UNK
     Route: 042

REACTIONS (3)
  - Haemodynamic instability [Recovered/Resolved]
  - Drug level abnormal [Recovered/Resolved]
  - Accidental exposure to product [Unknown]
